FAERS Safety Report 4467341-3 (Version None)
Quarter: 2004Q4

REPORT INFORMATION
  Report Type: 
  Country: None (occurrence: None)
  Receive Date: 20041004
  Receipt Date: 20040921
  Transmission Date: 20050328
  Serious: Yes (Other)
  Sender: FDA-Public Use
  Company Number: 2004068962

PATIENT
  Age: 56 Year
  Sex: Male

DRUGS (12)
  1. BENADRYL [Suspect]
     Indication: PRURITUS
     Dosage: SEE IMAGE
     Route: 042
  2. METRONIDAZOLE [Suspect]
     Indication: ILL-DEFINED DISORDER
     Dosage: 1500 MG (500 MG, 1 IN 8 HR)
  3. ZYVOX [Suspect]
     Indication: ILL-DEFINED DISORDER
     Dosage: 1200 MG (600 MG, 1 IN 12 HR)
  4. AZTREONAM (AZTREONAM) [Suspect]
     Indication: ILL-DEFINED DISORDER
     Dosage: 6 GRAM (600 MG, 1 IN 8 HR)
  5. VANCOMYCIN [Suspect]
     Indication: ILL-DEFINED DISORDER
     Dosage: 1700 MG (850 MG, 1 IN 12 HR), INTRAVENOUS
     Route: 042
  6. PIPERACILLIN/TAZOBACTAM (PIPERACILLIN, TAZOBACTAM) [Suspect]
     Indication: ILL-DEFINED DISORDER
     Dosage: 13.5 GRAM (3.375 GRAM, 1 IN 6 HRS)
  7. FLUCONAZOLE [Concomitant]
  8. CIPROFLOXACIN [Concomitant]
  9. INSULIN GLARGINE (INSULIN GLARGINE) [Concomitant]
  10. ROSIGLITAZONE (ROSIGLITAZONE) [Concomitant]
  11. CLOPIDOGREL (CLOPIDOGREL) [Concomitant]
  12. RAMIPRIL [Concomitant]

REACTIONS (23)
  - ACINETOBACTER INFECTION [None]
  - AGGRESSION [None]
  - CANDIDA SEPSIS [None]
  - CULTURE WOUND POSITIVE [None]
  - DELIRIUM [None]
  - ENTEROCOCCAL INFECTION [None]
  - EYELID OEDEMA [None]
  - HALLUCINATIONS, MIXED [None]
  - NAUSEA [None]
  - OSTEOMYELITIS [None]
  - PARANOIA [None]
  - PATHOGEN RESISTANCE [None]
  - PERSECUTORY DELUSION [None]
  - PSYCHOMOTOR HYPERACTIVITY [None]
  - RASH ERYTHEMATOUS [None]
  - RASH PRURITIC [None]
  - SKIN ULCER [None]
  - SKIN WARM [None]
  - STAPHYLOCOCCAL BACTERAEMIA [None]
  - STRABISMUS [None]
  - TACHYCARDIA [None]
  - VASCULAR INSUFFICIENCY [None]
  - VASCULITIS [None]
